FAERS Safety Report 9105776 (Version 2)
Quarter: 2013Q2

REPORT INFORMATION
  Report Type: Spontaneous
  Country: MT (occurrence: MT)
  Receive Date: 20130221
  Receipt Date: 20130408
  Transmission Date: 20140414
  Serious: Yes (Other)
  Sender: FDA-Public Use
  Company Number: MT-GLAXOSMITHKLINE-B0867808A

PATIENT
  Age: 44 Year
  Sex: Male

DRUGS (2)
  1. COMBODART [Suspect]
     Indication: BENIGN PROSTATIC HYPERPLASIA
     Dosage: 1CAP ALTERNATE DAYS
     Route: 065
     Dates: start: 20120412, end: 201301
  2. TAMSULOSIN [Concomitant]
     Indication: BENIGN PROSTATIC HYPERPLASIA

REACTIONS (4)
  - Testicular pain [Recovered/Resolved]
  - Blood urine present [Recovered/Resolved]
  - Blood testosterone increased [Recovered/Resolved]
  - Gynaecomastia [Recovered/Resolved]
